FAERS Safety Report 5639377-8 (Version None)
Quarter: 2008Q1

REPORT INFORMATION
  Report Type: 
  Country: None (occurrence: None)
  Receive Date: 20080131
  Receipt Date: 20071005
  Transmission Date: 20080703
  Serious: Yes (Other)
  Sender: FDA-Public Use
  Company Number: 009-21880-07100291

PATIENT
  Age: 63 Year
  Sex: Male
  Weight: 85 kg

DRUGS (3)
  1. REVLIMID [Suspect]
     Indication: MULTIPLE MYELOMA
     Dosage: 25 MG, ORAL
     Route: 048
     Dates: start: 20070703, end: 20070708
  2. ACETYLSALICYLIC ACID SRT [Concomitant]
  3. THROMB ASS (ACETYLSALICYLIC ACID) [Concomitant]

REACTIONS (1)
  - DEEP VEIN THROMBOSIS [None]
